FAERS Safety Report 4304533-8 (Version None)
Quarter: 2004Q1

REPORT INFORMATION
  Report Type: 
  Country: None (occurrence: None)
  Receive Date: 20040224
  Receipt Date: 20040217
  Transmission Date: 20041129
  Serious: Yes (Hospitalization, Disabling)
  Sender: FDA-Public Use
  Company Number: SE-JNJFOC-20040203511

PATIENT
  Age: 69 Year
  Sex: Male

DRUGS (5)
  1. REMICADE [Suspect]
     Indication: RHEUMATOID ARTHRITIS
     Dosage: 300 MG, INTRAVENOUS
     Route: 042
     Dates: start: 20010404, end: 20030331
  2. METHOTREXATE [Suspect]
     Indication: RHEUMATOID ARTHRITIS
  3. CACLICHEW () CALCIUM CARBONATE [Concomitant]
  4. ORUDIS RETARD () KETOPROFEN [Concomitant]
  5. FOLACIN () FOLACIN [Concomitant]

REACTIONS (8)
  - BALANCE DISORDER [None]
  - DEAFNESS [None]
  - DIFFICULTY IN WALKING [None]
  - DIZZINESS [None]
  - INFECTION IN AN IMMUNOCOMPROMISED HOST [None]
  - LOSS OF CONSCIOUSNESS [None]
  - MENINGITIS [None]
  - PNEUMOCOCCAL SEPSIS [None]
